FAERS Safety Report 7350249-3 (Version None)
Quarter: 2011Q1

REPORT INFORMATION
  Report Type: 
  Country: None (occurrence: None)
  Receive Date: 20110309
  Receipt Date: 20110309
  Transmission Date: 20110831
  Serious: No
  Sender: FDA-Public Use
  Company Number: None

PATIENT
  Age: 57 Year
  Sex: Male
  Weight: 70.8 kg

DRUGS (1)
  1. RITUXIMAB [Suspect]
     Indication: NEOPLASM MALIGNANT
     Dosage: 697 MG ONCE IV
     Route: 042
     Dates: start: 20110126, end: 20110126

REACTIONS (10)
  - URTICARIA [None]
  - DRY MOUTH [None]
  - HYPERHIDROSIS [None]
  - RASH PAPULAR [None]
  - PHARYNGEAL OEDEMA [None]
  - PRURITUS [None]
  - DYSPHAGIA [None]
  - INFUSION RELATED REACTION [None]
  - PALLOR [None]
  - SKIN WARM [None]
